FAERS Safety Report 19274809 (Version 4)
Quarter: 2022Q4

REPORT INFORMATION
  Report Type: Spontaneous
  Country: US (occurrence: US)
  Receive Date: 20210519
  Receipt Date: 20221007
  Transmission Date: 20230112
  Serious: No
  Sender: FDA-Public Use
  Company Number: US-PFIZER INC-2020074295

PATIENT
  Age: 61 Year
  Sex: Male
  Weight: 94.35 kg

DRUGS (3)
  1. RAPAMUNE [Suspect]
     Active Substance: SIROLIMUS
     Indication: Renal transplant
     Dosage: 2 DF, DAILY (1 MG, 90 DAY SUPPLY, TAKE 2 TABLETS DAILY)
     Route: 048
  2. RAPAMUNE [Suspect]
     Active Substance: SIROLIMUS
     Dosage: 1 MG, 2X/DAY
  3. RAPAMUNE [Suspect]
     Active Substance: SIROLIMUS
     Dosage: 2 MG, DAILY (2 MG, TAKE 1 TABLET (2 MG TOTAL)
     Route: 048

REACTIONS (1)
  - Aortic disorder [Unknown]
